FAERS Safety Report 21823191 (Version 1)
Quarter: 2023Q1

REPORT INFORMATION
  Report Type: Spontaneous
  Country: US (occurrence: US)
  Receive Date: 20230105
  Receipt Date: 20230105
  Transmission Date: 20230418
  Serious: Yes (Other)
  Sender: FDA-Public Use
  Company Number: US-PFIZER INC-PV202300001682

PATIENT

DRUGS (1)
  1. DUAVEE [Suspect]
     Active Substance: BAZEDOXIFENE ACETATE\ESTROGENS, CONJUGATED
     Indication: Menopausal symptoms
     Dosage: UNK

REACTIONS (4)
  - Uterine cancer [Unknown]
  - Cerebrovascular accident [Unknown]
  - Thrombosis [Unknown]
  - Breast cancer [Unknown]
